FAERS Safety Report 13546575 (Version 1)
Quarter: 2017Q2

REPORT INFORMATION
  Report Type: Spontaneous
  Country: DE (occurrence: DE)
  Receive Date: 20170515
  Receipt Date: 20170515
  Transmission Date: 20170830
  Serious: Yes (Death, Life-Threatening, Hospitalization)
  Sender: FDA-Public Use
  Company Number: DE-JNJFOC-20170507557

PATIENT
  Age: 75 Year
  Sex: Male

DRUGS (15)
  1. PANTOZOL [Concomitant]
     Active Substance: PANTOPRAZOLE SODIUM
     Dosage: FOR LONG TIME
     Route: 048
     Dates: start: 20170315
  2. DIAZEPAM. [Concomitant]
     Active Substance: DIAZEPAM
     Dosage: FOR LONG TIME
     Route: 048
     Dates: start: 20170312, end: 20170313
  3. RISPERDAL [Suspect]
     Active Substance: RISPERIDONE
     Indication: PRODUCT USED FOR UNKNOWN INDICATION
     Route: 048
     Dates: start: 20170307, end: 20170318
  4. HALDOL [Suspect]
     Active Substance: HALOPERIDOL
     Indication: PRODUCT USED FOR UNKNOWN INDICATION
     Route: 048
     Dates: start: 20170312, end: 20170321
  5. ASPIRIN. [Concomitant]
     Active Substance: ASPIRIN
     Dosage: FOR LONG TIME
     Route: 048
  6. TAMULOSIN [Concomitant]
     Active Substance: TAMSULOSIN
     Dosage: FOR LONG TIME
     Route: 048
  7. DIAZEPAM. [Concomitant]
     Active Substance: DIAZEPAM
     Route: 048
     Dates: start: 20170319
  8. DIAZEPAM. [Concomitant]
     Active Substance: DIAZEPAM
     Route: 048
     Dates: start: 20170314, end: 20170316
  9. THYROXINE [Concomitant]
     Active Substance: LEVOTHYROXINE
     Dosage: FOR LONG TIME
     Route: 048
  10. DIAZEPAM. [Concomitant]
     Active Substance: DIAZEPAM
     Route: 048
     Dates: start: 20170318, end: 20170318
  11. DIAZEPAM. [Concomitant]
     Active Substance: DIAZEPAM
     Route: 048
     Dates: start: 20170317, end: 20170317
  12. CLEXANE [Concomitant]
     Active Substance: ENOXAPARIN SODIUM
     Dosage: FOR LONG TIME
     Route: 048
     Dates: start: 20170307, end: 20170312
  13. SIMVASTATIN. [Concomitant]
     Active Substance: SIMVASTATIN
     Indication: LIPIDS DECREASED
     Dosage: FOR LONG TIME
     Route: 048
  14. BISOPROLOL [Concomitant]
     Active Substance: BISOPROLOL
     Dosage: FOR LONG TIME
     Route: 048
  15. CLEXANE [Concomitant]
     Active Substance: ENOXAPARIN SODIUM
     Route: 048
     Dates: start: 20170313

REACTIONS (11)
  - Neck pain [Unknown]
  - Laceration [Unknown]
  - Delirium [Unknown]
  - Loss of consciousness [Unknown]
  - Aggression [Unknown]
  - Acute kidney injury [Unknown]
  - Fall [Unknown]
  - Withdrawal syndrome [Unknown]
  - Hallucination, visual [Unknown]
  - Embolism venous [Unknown]
  - Pulmonary embolism [Fatal]

NARRATIVE: CASE EVENT DATE: 201703
